FAERS Safety Report 9460559 (Version 1)
Quarter: 2013Q3

REPORT INFORMATION
  Report Type: Spontaneous
  Country: FR (occurrence: FR)
  Receive Date: 20130815
  Receipt Date: 20130815
  Transmission Date: 20140515
  Serious: Yes (Hospitalization)
  Sender: FDA-Public Use
  Company Number: FR-ABBOTT-13P-056-1130743-00

PATIENT
  Age: 9 Year
  Sex: Female
  Weight: 22 kg

DRUGS (5)
  1. HUMIRA [Suspect]
     Indication: CROHN^S DISEASE
     Route: 058
     Dates: start: 20120907
  2. REMICADE [Suspect]
     Indication: CROHN^S DISEASE
     Route: 042
     Dates: start: 20120625, end: 201209
  3. SOLUPRED [Suspect]
     Indication: CROHN^S DISEASE
     Route: 048
     Dates: start: 201209
  4. PAMIDRONATE SODIUM [Suspect]
     Indication: OSTEOMYELITIS CHRONIC
     Route: 048
     Dates: start: 201201, end: 201305
  5. ACLASTA [Concomitant]
     Indication: OSTEOMYELITIS CHRONIC
     Dates: start: 201305

REACTIONS (1)
  - Ovarian germ cell teratoma benign [Recovered/Resolved]
